FAERS Safety Report 5922011-7 (Version None)
Quarter: 2008Q4

REPORT INFORMATION
  Report Type: 
  Country: None (occurrence: None)
  Receive Date: 20081017
  Receipt Date: 20081009
  Transmission Date: 20090506
  Serious: Yes (Other)
  Sender: FDA-Public Use
  Company Number: A0751136A

PATIENT
  Sex: Male

DRUGS (1)
  1. ZOFRAN [Suspect]
     Indication: DRUG USE FOR UNKNOWN INDICATION

REACTIONS (2)
  - AUTISM SPECTRUM DISORDER [None]
  - DRUG EXPOSURE DURING PREGNANCY [None]
